FAERS Safety Report 11397594 (Version 1)
Quarter: 2015Q3

REPORT INFORMATION
  Report Type: Report from Study
  Country: PL (occurrence: PL)
  Receive Date: 20150819
  Receipt Date: 20150819
  Transmission Date: 20151125
  Serious: Yes (Hospitalization)
  Sender: FDA-Public Use
  Company Number: PL-BAXALTA-2015BAX032243

PATIENT
  Age: 33 Year
  Sex: Male
  Weight: 60 kg

DRUGS (2)
  1. PEGYLATED COAGULATION FACTOR VIII [Suspect]
     Active Substance: RURIOCTOCOG ALFA PEGOL
     Indication: FACTOR VIII DEFICIENCY
     Dosage: FIRST ADMINISTRATION OF BAX 855
     Route: 042
     Dates: start: 201311
  2. PEGYLATED COAGULATION FACTOR VIII [Suspect]
     Active Substance: RURIOCTOCOG ALFA PEGOL
     Dosage: 3504 IU/KG EVERY 5 DAYS
     Route: 042
     Dates: start: 20150605, end: 20150605

REACTIONS (1)
  - Urinary tract infection [Recovered/Resolved with Sequelae]

NARRATIVE: CASE EVENT DATE: 20150605
